FAERS Safety Report 7201408-1 (Version None)
Quarter: 2010Q4

REPORT INFORMATION
  Report Type: 
  Country: None (occurrence: None)
  Receive Date: 20101216
  Receipt Date: 20101129
  Transmission Date: 20110411
  Serious: Yes (Hospitalization, Other)
  Sender: FDA-Public Use
  Company Number: JPI-P-010391

PATIENT
  Age: 25 Year
  Sex: Female

DRUGS (22)
  1. XYREM (500 MILLIGRAM/MILLILITERS, SOLUTION) (SODIUM OXYBATE) [Suspect]
     Indication: CATAPLEXY
     Dosage: SEE IMAGE
     Route: 048
     Dates: start: 20100126, end: 20100101
  2. XYREM (500 MILLIGRAM/MILLILITERS, SOLUTION) (SODIUM OXYBATE) [Suspect]
     Indication: SOMNOLENCE
     Dosage: SEE IMAGE
     Route: 048
     Dates: start: 20100126, end: 20100101
  3. XYREM (500 MILLIGRAM/MILLILITERS, SOLUTION) (SODIUM OXYBATE) [Suspect]
     Indication: SUICIDE ATTEMPT
     Dosage: SEE IMAGE
     Route: 048
     Dates: start: 20100126, end: 20100101
  4. XYREM (500 MILLIGRAM/MILLILITERS, SOLUTION) (SODIUM OXYBATE) [Suspect]
     Indication: CATAPLEXY
     Dosage: SEE IMAGE
     Route: 048
     Dates: start: 20100302, end: 20100302
  5. XYREM (500 MILLIGRAM/MILLILITERS, SOLUTION) (SODIUM OXYBATE) [Suspect]
     Indication: SOMNOLENCE
     Dosage: SEE IMAGE
     Route: 048
     Dates: start: 20100302, end: 20100302
  6. XYREM (500 MILLIGRAM/MILLILITERS, SOLUTION) (SODIUM OXYBATE) [Suspect]
     Indication: SUICIDE ATTEMPT
     Dosage: SEE IMAGE
     Route: 048
     Dates: start: 20100302, end: 20100302
  7. XYREM (500 MILLIGRAM/MILLILITERS, SOLUTION) (SODIUM OXYBATE) [Suspect]
     Indication: CATAPLEXY
     Dosage: SEE IMAGE
     Route: 048
     Dates: start: 20100401, end: 20100707
  8. XYREM (500 MILLIGRAM/MILLILITERS, SOLUTION) (SODIUM OXYBATE) [Suspect]
     Indication: SOMNOLENCE
     Dosage: SEE IMAGE
     Route: 048
     Dates: start: 20100401, end: 20100707
  9. XYREM (500 MILLIGRAM/MILLILITERS, SOLUTION) (SODIUM OXYBATE) [Suspect]
     Indication: SUICIDE ATTEMPT
     Dosage: SEE IMAGE
     Route: 048
     Dates: start: 20100401, end: 20100707
  10. XYREM (500 MILLIGRAM/MILLILITERS, SOLUTION) (SODIUM OXYBATE) [Suspect]
     Indication: CATAPLEXY
     Dosage: SEE IMAGE
     Route: 048
     Dates: start: 20100708, end: 20100909
  11. XYREM (500 MILLIGRAM/MILLILITERS, SOLUTION) (SODIUM OXYBATE) [Suspect]
     Indication: SOMNOLENCE
     Dosage: SEE IMAGE
     Route: 048
     Dates: start: 20100708, end: 20100909
  12. XYREM (500 MILLIGRAM/MILLILITERS, SOLUTION) (SODIUM OXYBATE) [Suspect]
     Indication: SUICIDE ATTEMPT
     Dosage: SEE IMAGE
     Route: 048
     Dates: start: 20100708, end: 20100909
  13. XYREM (500 MILLIGRAM/MILLILITERS, SOLUTION) (SODIUM OXYBATE) [Suspect]
     Indication: CATAPLEXY
     Dosage: SEE IMAGE
     Route: 048
     Dates: start: 20100916
  14. XYREM (500 MILLIGRAM/MILLILITERS, SOLUTION) (SODIUM OXYBATE) [Suspect]
     Indication: SOMNOLENCE
     Dosage: SEE IMAGE
     Route: 048
     Dates: start: 20100916
  15. XYREM (500 MILLIGRAM/MILLILITERS, SOLUTION) (SODIUM OXYBATE) [Suspect]
     Indication: SUICIDE ATTEMPT
     Dosage: SEE IMAGE
     Route: 048
     Dates: start: 20100916
  16. VENLAFAXINE [Suspect]
     Indication: CATAPLEXY
     Dosage: (75 MG),ORAL ; ORAL ; 75 MG (37.5 MG,2 IN 1 D),ORAL
     Route: 048
     Dates: start: 20050801, end: 20100101
  17. VENLAFAXINE [Suspect]
     Indication: SUICIDE ATTEMPT
     Dosage: (75 MG),ORAL ; ORAL ; 75 MG (37.5 MG,2 IN 1 D),ORAL
     Route: 048
     Dates: start: 20050801, end: 20100101
  18. VENLAFAXINE [Suspect]
     Indication: CATAPLEXY
     Dosage: (75 MG),ORAL ; ORAL ; 75 MG (37.5 MG,2 IN 1 D),ORAL
     Route: 048
     Dates: start: 20100302, end: 20100101
  19. VENLAFAXINE [Suspect]
     Indication: SUICIDE ATTEMPT
     Dosage: (75 MG),ORAL ; ORAL ; 75 MG (37.5 MG,2 IN 1 D),ORAL
     Route: 048
     Dates: start: 20100302, end: 20100101
  20. VENLAFAXINE [Suspect]
     Indication: CATAPLEXY
     Dosage: (75 MG),ORAL ; ORAL ; 75 MG (37.5 MG,2 IN 1 D),ORAL
     Route: 048
     Dates: start: 20100101
  21. VENLAFAXINE [Suspect]
     Indication: SUICIDE ATTEMPT
     Dosage: (75 MG),ORAL ; ORAL ; 75 MG (37.5 MG,2 IN 1 D),ORAL
     Route: 048
     Dates: start: 20100101
  22. LEVOTHYROXINE SODIUM [Concomitant]

REACTIONS (14)
  - ABNORMAL BEHAVIOUR [None]
  - AGITATION [None]
  - BLOOD GLUCOSE DECREASED [None]
  - BLOOD PH INCREASED [None]
  - BLOOD PRESSURE SYSTOLIC INCREASED [None]
  - COMA SCALE ABNORMAL [None]
  - CONVULSION [None]
  - DEPRESSION [None]
  - DIVORCED [None]
  - DRUG SCREEN POSITIVE [None]
  - PARTNER STRESS [None]
  - PCO2 DECREASED [None]
  - PO2 INCREASED [None]
  - SUICIDE ATTEMPT [None]
